FAERS Safety Report 7451266-5 (Version None)
Quarter: 2011Q2

REPORT INFORMATION
  Report Type: 
  Country: None (occurrence: None)
  Receive Date: 20110502
  Receipt Date: 20110421
  Transmission Date: 20111010
  Serious: Yes (Other)
  Sender: FDA-Public Use
  Company Number: AU-ASTRAZENECA-2011SE23617

PATIENT
  Age: 80 Year
  Sex: Male

DRUGS (6)
  1. EXFORGE [Concomitant]
  2. LASIX [Concomitant]
  3. ZOLADEX [Suspect]
     Route: 058
     Dates: start: 20070101
  4. SOLPRIN [Concomitant]
  5. SYMBICORT [Concomitant]
  6. BICOR [Concomitant]

REACTIONS (2)
  - PULMONARY OEDEMA [None]
  - CARDIOMEGALY [None]
